FAERS Safety Report 17911810 (Version 1)
Quarter: 2020Q2

REPORT INFORMATION
  Report Type: Spontaneous
  Country: US (occurrence: US)
  Receive Date: 20200618
  Receipt Date: 20200618
  Transmission Date: 20200714
  Serious: No
  Sender: FDA-Public Use
  Company Number: None

PATIENT
  Age: 72 Year
  Sex: Female
  Weight: 88.65 kg

DRUGS (17)
  1. FASLODEX [Concomitant]
     Active Substance: FULVESTRANT
  2. BUPROPION. [Concomitant]
     Active Substance: BUPROPION
  3. SIMVASTATIN. [Concomitant]
     Active Substance: SIMVASTATIN
  4. FLEXERIL [Concomitant]
     Active Substance: CYCLOBENZAPRINE HYDROCHLORIDE
  5. VERZENIO [Suspect]
     Active Substance: ABEMACICLIB
     Indication: BREAST CANCER
     Dates: start: 20200417, end: 20200618
  6. AVAPRO [Concomitant]
     Active Substance: IRBESARTAN
  7. PREDNISONE. [Concomitant]
     Active Substance: PREDNISONE
  8. XGEVA [Concomitant]
     Active Substance: DENOSUMAB
  9. ALLOPURINOL. [Concomitant]
     Active Substance: ALLOPURINOL
  10. FENTANYL. [Concomitant]
     Active Substance: FENTANYL
  11. FOLIC ACID. [Concomitant]
     Active Substance: FOLIC ACID
  12. NORVASC [Concomitant]
     Active Substance: AMLODIPINE BESYLATE
  13. VITAMIN D3 [Concomitant]
     Active Substance: CHOLECALCIFEROL
  14. KEFLEX [Concomitant]
     Active Substance: CEPHALEXIN
  15. GABAPENTIN. [Concomitant]
     Active Substance: GABAPENTIN
  16. DILAUDID [Concomitant]
     Active Substance: HYDROMORPHONE HYDROCHLORIDE
  17. XANAX [Concomitant]
     Active Substance: ALPRAZOLAM

REACTIONS (1)
  - Disease progression [None]

NARRATIVE: CASE EVENT DATE: 20200618
